FAERS Safety Report 4391236-7 (Version None)
Quarter: 2004Q2

REPORT INFORMATION
  Report Type: 
  Country: None (occurrence: None)
  Receive Date: 20040621
  Receipt Date: 20040205
  Transmission Date: 20050107
  Serious: Yes (Death, Other)
  Sender: FDA-Public Use
  Company Number: USA-2003-0005841

PATIENT
  Age: 25 Year
  Sex: Male
  Weight: 72.1 kg

DRUGS (10)
  1. OXYCONTIN [Suspect]
  2. MORPHINE SULFATE [Suspect]
  3. COCAINE (COCAINE) [Suspect]
  4. DIAZEPAM [Suspect]
  5. XANAX [Suspect]
  6. MARIJUANA (CANNABIS) [Suspect]
  7. LIDOCAINE [Suspect]
  8. CAFFEINE (CAFFEINE) [Suspect]
  9. TEMAZEPAM [Suspect]
  10. CODEINE (CODEINE) [Suspect]

REACTIONS (4)
  - DRUG ABUSER [None]
  - DRUG DEPENDENCE [None]
  - LOSS OF CONSCIOUSNESS [None]
  - MULTIPLE DRUG OVERDOSE ACCIDENTAL [None]
